FAERS Safety Report 10344489 (Version 1)
Quarter: 2014Q3

REPORT INFORMATION
  Report Type: Spontaneous
  Country: JP (occurrence: JP)
  Receive Date: 20140728
  Receipt Date: 20140728
  Transmission Date: 20150326
  Serious: Yes (Other)
  Sender: FDA-Public Use
  Company Number: PHHY2014JP090959

PATIENT
  Age: 57 Year
  Sex: Female

DRUGS (1)
  1. ZOLEDRONIC ACID [Suspect]
     Active Substance: ZOLEDRONIC ACID
     Indication: METASTASES TO BONE
     Route: 041

REACTIONS (5)
  - Bone disorder [Recovering/Resolving]
  - Fall [Recovering/Resolving]
  - Bone pain [Recovering/Resolving]
  - Gait disturbance [Recovered/Resolved]
  - Atypical femur fracture [Recovering/Resolving]
